FAERS Safety Report 7684808-5 (Version None)
Quarter: 2011Q3

REPORT INFORMATION
  Report Type: 
  Country: None (occurrence: None)
  Receive Date: 20110816
  Receipt Date: 20110808
  Transmission Date: 20111222
  Serious: Yes (Other)
  Sender: FDA-Public Use
  Company Number: US-CEPHALON-US020308

PATIENT
  Sex: Male
  Weight: 77 kg

DRUGS (3)
  1. PROVIGIL [Suspect]
     Indication: MIGRAINE
  2. PROVIGIL [Suspect]
     Indication: NARCOLEPSY
     Route: 048
     Dates: start: 20040101, end: 20040101
  3. INDERAL LA [Suspect]
     Route: 065

REACTIONS (2)
  - DRUG INTERACTION [None]
  - BRADYCARDIA [None]
